FAERS Safety Report 4782823-2 (Version None)
Quarter: 2005Q3

REPORT INFORMATION
  Report Type: 
  Country: None (occurrence: None)
  Receive Date: 20050929
  Receipt Date: 20050921
  Transmission Date: 20060218
  Serious: Yes (Hospitalization)
  Sender: FDA-Public Use
  Company Number: 200518281GDDC

PATIENT
  Age: 61 Year
  Sex: Male
  Weight: 59.87 kg

DRUGS (5)
  1. DOCETAXEL [Suspect]
     Indication: SQUAMOUS CELL CARCINOMA
     Route: 042
     Dates: start: 20050818, end: 20050818
  2. OXYCODONE HCL [Concomitant]
  3. WELLBUTRIN [Concomitant]
     Route: 048
  4. BUSPAR [Concomitant]
     Route: 048
  5. ATIVAN [Concomitant]
     Dosage: DOSE: 0.5 MG EVERY 12 HOURS
     Route: 048

REACTIONS (8)
  - CONFUSIONAL STATE [None]
  - DISORIENTATION [None]
  - HYPONATRAEMIA [None]
  - MENTAL STATUS CHANGES [None]
  - NEUTROPENIA [None]
  - PNEUMONIA [None]
  - PYREXIA [None]
  - WHITE BLOOD CELL COUNT DECREASED [None]
